FAERS Safety Report 8535234-8 (Version None)
Quarter: 2012Q3

REPORT INFORMATION
  Report Type: 
  Country: None (occurrence: None)
  Receive Date: 20120725
  Receipt Date: 20120719
  Transmission Date: 20120928
  Serious: Yes (Other)
  Sender: FDA-Public Use
  Company Number: CA-AMGEN-CANSP2012045176

PATIENT
  Age: 67 Year
  Sex: Male

DRUGS (4)
  1. RITUXAN [Concomitant]
     Dosage: UNK
     Dates: start: 20120701
  2. CYCLOPHOSPHAMIDE [Concomitant]
     Dosage: UNK
     Dates: start: 20120701
  3. NEULASTA [Suspect]
     Indication: NEUTROPENIA
     Dosage: 6 MG, ONE TIME DOSE
     Route: 058
     Dates: start: 20120715, end: 20120715
  4. FLUDARA [Concomitant]
     Dosage: UNK
     Dates: start: 20120701

REACTIONS (1)
  - PANCREATITIS [None]
